FAERS Safety Report 5930763-5 (Version None)
Quarter: 2008Q4

REPORT INFORMATION
  Report Type: 
  Country: None (occurrence: None)
  Receive Date: 20081002
  Receipt Date: 20080423
  Transmission Date: 20090506
  Serious: Yes (Other)
  Sender: FDA-Public Use
  Company Number: 2008-0016190

PATIENT
  Sex: Male

DRUGS (3)
  1. TRUVADA [Suspect]
     Indication: HIV INFECTION
  2. ATAZANAVIR SULFATE [Concomitant]
  3. RITONAVIR (RITONAVIR) [Concomitant]

REACTIONS (1)
  - FANCONI SYNDROME ACQUIRED [None]
